FAERS Safety Report 17086629 (Version 1)
Quarter: 2019Q4

REPORT INFORMATION
  Report Type: Spontaneous
  Country: US (occurrence: US)
  Receive Date: 20191128
  Receipt Date: 20191128
  Transmission Date: 20200122
  Serious: No
  Sender: FDA-Public Use
  Company Number: US-HEYL CHEMISCH-PHARMAZEUTISCHE FABRIK-2077285

PATIENT
  Age: 65 Year
  Sex: Female

DRUGS (1)
  1. RADIOGARDASE [Suspect]
     Active Substance: FERRIC FERROCYANIDE
     Indication: METAL POISONING
     Route: 048
     Dates: start: 20180929, end: 20181014

REACTIONS (6)
  - Diarrhoea [Recovered/Resolved]
  - Influenza like illness [Recovered/Resolved]
  - Constipation [Recovered/Resolved]
  - Malaise [Recovered/Resolved]
  - Myalgia [Recovered/Resolved]
  - Bowel movement irregularity [Recovered/Resolved]

NARRATIVE: CASE EVENT DATE: 20181004
